FAERS Safety Report 9602626 (Version 2)
Quarter: 2013Q4

REPORT INFORMATION
  Report Type: Spontaneous
  Country: CN (occurrence: None)
  Receive Date: 20131003
  Receipt Date: 20131025
  Transmission Date: 20140711
  Serious: Yes (Other)
  Sender: FDA-Public Use
  Company Number: 7238844

PATIENT
  Age: 60 Year
  Sex: Female

DRUGS (1)
  1. EUTHYROX [Suspect]
     Dosage: 1-1/4 TABLET (50MCG, 1 IN 1 D)
     Route: 048
     Dates: start: 20130720, end: 201308

REACTIONS (8)
  - Anti-thyroid antibody positive [None]
  - Hypophagia [None]
  - Weight decreased [None]
  - Arrhythmia [None]
  - Restlessness [None]
  - Hyperhidrosis [None]
  - Vomiting [None]
  - Initial insomnia [None]
